FAERS Safety Report 10577815 (Version 2)
Quarter: 2014Q4

REPORT INFORMATION
  Report Type: Spontaneous
  Country: US (occurrence: US)
  Receive Date: 20141111
  Receipt Date: 20141111
  Transmission Date: 20150529
  Serious: No
  Sender: FDA-Public Use
  Company Number: US-MALLINCKRODT-T201402623

PATIENT
  Sex: Female

DRUGS (1)
  1. PENNSAID [Suspect]
     Active Substance: DICLOFENAC SODIUM
     Indication: FOOT DEFORMITY
     Dosage: 2 PUMPS, TWICE DAILY
     Route: 061
     Dates: start: 201406, end: 201407

REACTIONS (1)
  - Drug ineffective for unapproved indication [Unknown]
